FAERS Safety Report 7968140-8 (Version None)
Quarter: 2011Q4

REPORT INFORMATION
  Report Type: 
  Country: None (occurrence: None)
  Receive Date: 20111209
  Receipt Date: 20111130
  Transmission Date: 20120403
  Serious: Yes (Hospitalization, Disabling, Other)
  Sender: FDA-Public Use
  Company Number: US-BRISTOL-MYERS SQUIBB COMPANY-16262180

PATIENT
  Age: 57 Year
  Sex: Female
  Weight: 77 kg

DRUGS (7)
  1. ABILIFY [Suspect]
     Dates: end: 20111001
  2. THYROID TAB [Concomitant]
  3. PROVIGIL [Suspect]
     Indication: SLEEP APNOEA SYNDROME
     Dosage: TABS
     Route: 048
     Dates: start: 20101101, end: 20111001
  4. CYMBALTA [Suspect]
     Dates: end: 20111001
  5. RELAFEN [Concomitant]
  6. CRESTOR [Concomitant]
  7. NEURONTIN [Concomitant]

REACTIONS (2)
  - CONVERSION DISORDER [None]
  - APHTHOUS STOMATITIS [None]
